FAERS Safety Report 19069773 (Version 12)
Quarter: 2022Q2

REPORT INFORMATION
  Report Type: Report from Study
  Country: JP (occurrence: JP)
  Receive Date: 20210329
  Receipt Date: 20220420
  Transmission Date: 20220721
  Serious: Yes (Hospitalization)
  Sender: FDA-Public Use
  Company Number: JP-EISAI-202011312_BOLD-LF_C_1

PATIENT
  Age: 55 Year
  Sex: Male
  Weight: 85 kg

DRUGS (33)
  1. ERIBULIN [Suspect]
     Active Substance: ERIBULIN
     Indication: Oesophageal carcinoma
     Route: 041
     Dates: start: 20210315, end: 20210315
  2. ERIBULIN [Suspect]
     Active Substance: ERIBULIN
     Route: 041
     Dates: start: 2021, end: 20210426
  3. ERIBULIN [Suspect]
     Active Substance: ERIBULIN
     Route: 041
     Dates: start: 20210607, end: 20210927
  4. NIVOLUMAB [Suspect]
     Active Substance: NIVOLUMAB
     Indication: Oesophageal carcinoma
     Route: 041
     Dates: start: 20210315, end: 20210426
  5. NIVOLUMAB [Suspect]
     Active Substance: NIVOLUMAB
     Route: 041
     Dates: start: 20210607, end: 20210927
  6. ASPIRIN [Suspect]
     Active Substance: ASPIRIN
     Indication: Prophylaxis
     Route: 048
     Dates: start: 201907
  7. VONOPRAZAN FUMARATE [Concomitant]
     Active Substance: VONOPRAZAN FUMARATE
     Indication: Gastritis prophylaxis
     Route: 048
     Dates: start: 201910
  8. VONOPRAZAN FUMARATE [Concomitant]
     Active Substance: VONOPRAZAN FUMARATE
     Route: 048
     Dates: start: 20210330
  9. CARVEDILOL [Concomitant]
     Active Substance: CARVEDILOL
     Indication: Hypertension
     Route: 048
     Dates: start: 2009
  10. SENNOSIDES [Concomitant]
     Active Substance: SENNOSIDES
     Indication: Constipation
     Route: 048
     Dates: start: 201911
  11. MAGNESIUM OXIDE [Concomitant]
     Active Substance: MAGNESIUM OXIDE
     Indication: Constipation
     Route: 048
     Dates: start: 201911
  12. TRAMADOL [Concomitant]
     Active Substance: TRAMADOL
     Indication: Arthralgia
     Route: 048
     Dates: start: 20210315
  13. CALONAL [Concomitant]
     Active Substance: ACETAMINOPHEN
     Indication: Arthralgia
     Route: 048
     Dates: start: 20200716
  14. LOXOPROFEN [Concomitant]
     Active Substance: LOXOPROFEN
     Indication: Arthralgia
     Route: 048
     Dates: start: 20200722
  15. LYRICA [Concomitant]
     Active Substance: PREGABALIN
     Indication: Neuropathy peripheral
     Route: 048
     Dates: start: 20200903
  16. OLMESARTAN MEDOXOMIL [Concomitant]
     Active Substance: OLMESARTAN MEDOXOMIL
     Indication: Hypertension
     Route: 048
     Dates: start: 20201015
  17. AMLODIPINE [Concomitant]
     Active Substance: AMLODIPINE BESYLATE
     Indication: Hypertension
     Route: 048
     Dates: start: 20201029
  18. AMLODIPINE [Concomitant]
     Active Substance: AMLODIPINE BESYLATE
     Route: 048
     Dates: start: 20210330
  19. NOVAMIN [Concomitant]
     Indication: Nausea
     Route: 048
     Dates: start: 202005
  20. DAYVIGO [Concomitant]
     Active Substance: LEMBOREXANT
     Indication: Insomnia
     Route: 048
     Dates: start: 20210323, end: 2021
  21. DAYVIGO [Concomitant]
     Active Substance: LEMBOREXANT
     Route: 048
     Dates: start: 20210525
  22. FERROUS SULFATE [Concomitant]
     Active Substance: FERROUS SULFATE
     Indication: Anaemia
     Route: 048
     Dates: start: 20210413
  23. TRELEGY ELLIPTA [Concomitant]
     Active Substance: FLUTICASONE FUROATE\UMECLIDINIUM BROMIDE\VILANTEROL TRIFENATATE
     Indication: Asthma
     Dosage: INHALATANAT
     Route: 065
     Dates: start: 20210628
  24. SYMBICORT [Concomitant]
     Active Substance: BUDESONIDE\FORMOTEROL FUMARATE DIHYDRATE
     Indication: Asthma
     Dosage: INHALATANAT
     Route: 065
     Dates: start: 20210628
  25. NASONEX [Concomitant]
     Active Substance: MOMETASONE FUROATE
     Indication: Sinus disorder
     Route: 045
     Dates: start: 20210816
  26. DIFLORASONE DIACETATE [Concomitant]
     Active Substance: DIFLORASONE DIACETATE
     Indication: Pruritus
     Route: 065
     Dates: start: 20210913
  27. FEXOFENADINE HYDROCHLORIDE [Concomitant]
     Active Substance: FEXOFENADINE HYDROCHLORIDE
     Indication: Pruritus
     Route: 048
     Dates: start: 20210927
  28. TRELEGY ELLIPTA [Concomitant]
     Active Substance: FLUTICASONE FUROATE\UMECLIDINIUM BROMIDE\VILANTEROL TRIFENATATE
     Indication: Asthma
     Dosage: INHALATANAT
     Route: 065
     Dates: start: 20210628
  29. AUGMENTIN [Concomitant]
     Active Substance: AMOXICILLIN\CLAVULANATE POTASSIUM
     Indication: Sinus disorder
     Route: 048
     Dates: start: 20211013
  30. PROBIOTICS NOS [Concomitant]
     Active Substance: PROBIOTICS NOS
     Indication: Prophylaxis
     Route: 048
     Dates: start: 20211013
  31. CARBOCYSTEINE [Concomitant]
     Active Substance: CARBOCYSTEINE
     Indication: Sinus disorder
     Route: 048
     Dates: start: 20211013
  32. PROCATEROL HYDROCHLORIDE [Concomitant]
     Active Substance: PROCATEROL HYDROCHLORIDE
     Indication: Asthma
     Dosage: INHALATANAT
     Route: 065
     Dates: start: 20211018
  33. THEO-DUR [Concomitant]
     Active Substance: THEOPHYLLINE ANHYDROUS
     Indication: Asthma
     Route: 065
     Dates: start: 20211018

REACTIONS (6)
  - Lower gastrointestinal haemorrhage [Recovered/Resolved]
  - Asthma [Recovered/Resolved]
  - Atypical mycobacterial lower respiratory tract infection [Recovering/Resolving]
  - Urticaria [Recovered/Resolved]
  - Febrile neutropenia [Recovered/Resolved]
  - Thrombocytopenia [Recovered/Resolved]

NARRATIVE: CASE EVENT DATE: 20210319
